FAERS Safety Report 4440601-8 (Version None)
Quarter: 2004Q3

REPORT INFORMATION
  Report Type: 
  Country: None (occurrence: None)
  Receive Date: 20040831
  Receipt Date: 20040415
  Transmission Date: 20050211
  Serious: Yes (Other)
  Sender: FDA-Public Use
  Company Number: 200410206BCA

PATIENT
  Age: 56 Year
  Sex: Female

DRUGS (9)
  1. GAMUNEX [Suspect]
     Indication: BONE MARROW TRANSPLANT
     Dosage: 55 G, NI, INTRAVENOUS
     Route: 042
     Dates: start: 20040223
  2. GAMUNEX [Suspect]
     Indication: BONE MARROW TRANSPLANT
     Dosage: 55 G, NI, INTRAVENOUS
     Route: 042
     Dates: start: 20040223
  3. GAMUNEX [Suspect]
     Indication: BONE MARROW TRANSPLANT
     Dosage: 55 G, NI, INTRAVENOUS
     Route: 042
     Dates: start: 20040223
  4. GAMUNEX [Suspect]
  5. GAMUNEX [Suspect]
  6. ACYCLOVIR [Concomitant]
  7. LOSEC /SWE/ [Concomitant]
  8. SULCRATE [Concomitant]
  9. ATOVAQUONE [Concomitant]

REACTIONS (5)
  - GRAFT VERSUS HOST DISEASE [None]
  - HAEMOCHROMATOSIS [None]
  - HAEMOSIDEROSIS [None]
  - HEPATITIS B CORE ANTIGEN POSITIVE [None]
  - HEPATITIS B SURFACE ANTIGEN POSITIVE [None]
